FAERS Safety Report 11614215 (Version 1)
Quarter: 2015Q4

REPORT INFORMATION
  Report Type: Spontaneous
  Country: US (occurrence: US)
  Receive Date: 20151008
  Receipt Date: 20151008
  Transmission Date: 20160304
  Serious: Yes (Death)
  Sender: FDA-Public Use
  Company Number: US-TEVA-599601USA

PATIENT
  Sex: Female

DRUGS (1)
  1. GRANIX [Suspect]
     Active Substance: TBO-FILGRASTIM
     Indication: NEUTROPENIA
     Route: 065

REACTIONS (1)
  - Septic shock [Fatal]

NARRATIVE: CASE EVENT DATE: 201509
